FAERS Safety Report 6172581-1 (Version None)
Quarter: 2009Q2

REPORT INFORMATION
  Report Type: 
  Country: None (occurrence: None)
  Receive Date: 20090428
  Receipt Date: 20090415
  Transmission Date: 20091009
  Serious: Yes (Hospitalization)
  Sender: FDA-Public Use
  Company Number: 09-000544

PATIENT
  Age: 18 Year
  Sex: Female
  Weight: 45.4 kg

DRUGS (1)
  1. LOESTRIN 24 FE [Suspect]
     Indication: MENSTRUAL CYCLE MANAGEMENT
     Dosage: 20/1000 UG  QD, ORAL
     Route: 048
     Dates: start: 20081101, end: 20090312

REACTIONS (4)
  - BLOOD HOMOCYSTEINE INCREASED [None]
  - FIBRIN D DIMER INCREASED [None]
  - LOBAR PNEUMONIA [None]
  - PULMONARY EMBOLISM [None]
